FAERS Safety Report 7075306-0 (Version None)
Quarter: 2010Q4

REPORT INFORMATION
  Report Type: 
  Country: None (occurrence: None)
  Receive Date: 20101030
  Receipt Date: 20100921
  Transmission Date: 20110411
  Serious: No
  Sender: FDA-Public Use
  Company Number: US-WYE-H17005110

PATIENT
  Sex: Female

DRUGS (2)
  1. PRISTIQ [Suspect]
     Dates: start: 20100813
  2. ADDERALL 10 [Concomitant]

REACTIONS (2)
  - DYSKINESIA [None]
  - MOUTH ULCERATION [None]
